FAERS Safety Report 5420055-5 (Version None)
Quarter: 2007Q3

REPORT INFORMATION
  Report Type: 
  Country: None (occurrence: None)
  Receive Date: 20070820
  Receipt Date: 20070814
  Transmission Date: 20080115
  Serious: Yes (Hospitalization)
  Sender: FDA-Public Use
  Company Number: BE-BAYER-200714702GDS

PATIENT
  Age: 79 Year
  Sex: Male
  Weight: 68 kg

DRUGS (14)
  1. PLACEBO [Suspect]
     Indication: NON-SMALL CELL LUNG CANCER
     Dosage: TOTAL DAILY DOSE: 800 MG
     Route: 048
     Dates: start: 20070717, end: 20070814
  2. CISPLATIN [Suspect]
     Indication: NON-SMALL CELL LUNG CANCER
     Route: 042
     Dates: start: 20070717, end: 20070807
  3. GEMCITABINE HCL [Suspect]
     Indication: NON-SMALL CELL LUNG CANCER
     Route: 042
     Dates: start: 20070717, end: 20070814
  4. ACTRAPID [Concomitant]
     Indication: DIABETES MELLITUS
     Route: 042
     Dates: start: 20070814
  5. SYMBICORT [Concomitant]
     Indication: COUGH
     Route: 055
     Dates: start: 20060101
  6. GLUCOPHAGE [Concomitant]
     Indication: DIABETES MELLITUS
     Route: 065
     Dates: start: 20030101
  7. THEOLAIR [Concomitant]
     Indication: COUGH
     Dates: start: 20060101
  8. ASAFLOW [Concomitant]
     Indication: DRUG USE FOR UNKNOWN INDICATION
     Route: 065
     Dates: start: 20070717, end: 20070731
  9. ASAFLOW [Concomitant]
     Route: 065
     Dates: start: 20061101, end: 20070716
  10. PLAVIX [Concomitant]
     Indication: DRUG USE FOR UNKNOWN INDICATION
     Route: 065
     Dates: start: 20070711
  11. LIPITOR [Concomitant]
     Indication: HYPERCHOLESTEROLAEMIA
     Route: 065
     Dates: start: 19940201
  12. SYSCOR [Concomitant]
     Indication: HYPERTENSION
     Route: 065
     Dates: start: 20061101
  13. DIMITONE [Concomitant]
     Indication: HYPERTENSION
     Route: 065
  14. LASIX [Concomitant]
     Indication: DIURETIC THERAPY
     Route: 065
     Dates: start: 20070807, end: 20070807

REACTIONS (1)
  - NEPHROPATHY TOXIC [None]
